FAERS Safety Report 7684445-2 (Version None)
Quarter: 2011Q3

REPORT INFORMATION
  Report Type: 
  Country: None (occurrence: None)
  Receive Date: 20110816
  Receipt Date: 20110809
  Transmission Date: 20111222
  Serious: No
  Sender: FDA-Public Use
  Company Number: US-BIOGENIDEC-2011BI011591

PATIENT
  Age: 26 Year
  Sex: Female

DRUGS (2)
  1. TYSABRI [Suspect]
     Indication: MULTIPLE SCLEROSIS
     Route: 042
     Dates: start: 20110302
  2. REBIF [Concomitant]
     Indication: MULTIPLE SCLEROSIS

REACTIONS (9)
  - INFLAMMATION [None]
  - FATIGUE [None]
  - DEPRESSION [None]
  - LYMPH GLAND INFECTION [None]
  - DIZZINESS [None]
  - BACK PAIN [None]
  - LOCAL SWELLING [None]
  - HEADACHE [None]
  - STRESS [None]
